FAERS Safety Report 7786388-2 (Version None)
Quarter: 2011Q3

REPORT INFORMATION
  Report Type: 
  Country: None (occurrence: None)
  Receive Date: 20110929
  Receipt Date: 20110928
  Transmission Date: 20111222
  Serious: Yes (Death, Hospitalization)
  Sender: FDA-Public Use
  Company Number: PHEH2011US03591

PATIENT
  Sex: Female
  Weight: 52.608 kg

DRUGS (11)
  1. EXJADE [Suspect]
     Indication: IRON OVERLOAD
     Dosage: 1375 MG, QD
     Route: 048
     Dates: start: 20100701, end: 20110721
  2. DOXORUBICIN HCL [Concomitant]
     Indication: B-CELL LYMPHOMA
     Dates: start: 20110816, end: 20110817
  3. NEURONTIN [Concomitant]
     Dosage: 300 MG, UNK
  4. BENZONATATE [Concomitant]
     Dosage: 200 MG, UNK
  5. CYCLOPHOSPHAMIDE W/VINCRISTINE/PREDNISONE [Concomitant]
     Indication: B-CELL LYMPHOMA
     Dates: start: 20110816, end: 20110817
  6. NEXIUM [Concomitant]
     Indication: GASTROOESOPHAGEAL REFLUX DISEASE
  7. CEPHALEXIN [Concomitant]
     Dosage: 500 MG, UNK
  8. ANTIARRHYTHMICS [Concomitant]
  9. ATENOLOL [Concomitant]
     Indication: HYPERTENSION
     Dosage: 25 MG, UNK
     Route: 048
  10. NEULASTA [Concomitant]
     Dosage: 6 MG, UNK
     Route: 058
     Dates: start: 20110818, end: 20110818
  11. PREDNISONE [Concomitant]
     Indication: INFLAMMATION
     Route: 048

REACTIONS (6)
  - B-CELL LYMPHOMA [None]
  - PYREXIA [None]
  - FATIGUE [None]
  - HEADACHE [None]
  - DYSPNOEA [None]
  - CHILLS [None]
